FAERS Safety Report 9349111 (Version 3)
Quarter: 2013Q3

REPORT INFORMATION
  Report Type: Spontaneous
  Country: IT (occurrence: IT)
  Receive Date: 20130614
  Receipt Date: 20130730
  Transmission Date: 20140515
  Serious: Yes (Hospitalization)
  Sender: FDA-Public Use
  Company Number: IT-PFIZER INC-2013177427

PATIENT
  Age: 46 Year
  Sex: Female

DRUGS (1)
  1. UNASYN [Suspect]
     Indication: ERYSIPELAS
     Dosage: 12 G, ONCE PER DAY
     Route: 042
     Dates: start: 20130526, end: 20130530

REACTIONS (1)
  - Urticaria [Recovering/Resolving]
